FAERS Safety Report 6402746-2 (Version None)
Quarter: 2009Q4

REPORT INFORMATION
  Report Type: 
  Country: None (occurrence: None)
  Receive Date: 20091013
  Receipt Date: 20090924
  Transmission Date: 20100525
  Serious: No
  Sender: FDA-Public Use
  Company Number: TPA2009A01352

PATIENT
  Age: 43 Year
  Sex: Female
  Weight: 111.1313 kg

DRUGS (20)
  1. PREVACID [Suspect]
     Indication: DYSPEPSIA
     Dosage: 30 MG, 2 IN 1 D, ORAL
     Route: 048
     Dates: start: 20030101
  2. PRIMIDONE [Suspect]
     Indication: EPILEPSY
     Dosage: 250 MG, TID TO QID, PER ORAL; PER ORAL
     Route: 048
  3. PRIMIDONE [Suspect]
     Indication: EPILEPSY
     Dosage: 250 MG, TID TO QID, PER ORAL; PER ORAL
     Route: 048
     Dates: start: 20010101
  4. METFORMIN HCL [Suspect]
     Indication: BLOOD TESTOSTERONE ABNORMAL
     Dosage: 250 MG, 3 OR 4 TIMES PER DAY, PER ORAL; 300 MG, 2 IN 1 D, PER ORAL
     Route: 047
     Dates: start: 20010101
  5. METFORMIN HCL [Suspect]
     Indication: BLOOD TESTOSTERONE ABNORMAL
     Dosage: 250 MG, 3 OR 4 TIMES PER DAY, PER ORAL; 300 MG, 2 IN 1 D, PER ORAL
     Route: 047
     Dates: start: 20040101
  6. LITHIUM CARBONATE [Suspect]
     Indication: MOOD SWINGS
     Dosage: 300 MG 2 IN 1 D, PER ORAL
     Route: 047
     Dates: start: 20040101
  7. WELLBUTRIN XL [Suspect]
     Indication: DEPRESSION
     Dosage: 150 MG, 1 IN 1 D, PER ORAL
     Route: 048
     Dates: start: 20040101
  8. ESTRADIOL [Suspect]
     Indication: HYSTERECTOMY
     Dosage: 2 MG, 2 IN 1 D, PER ORAL
     Route: 048
     Dates: start: 20060101
  9. DICYCLOMINE [Suspect]
     Indication: DYSPEPSIA
     Dosage: 10 MG, 4 IN 1 D, PER ORAL
     Route: 048
     Dates: start: 20070101
  10. RELPAX [Suspect]
     Indication: MIGRAINE
     Dosage: 20 MG AS REQUIRED, PER ORAL
     Route: 048
     Dates: start: 20030101
  11. WELLBUTRIN [Concomitant]
     Indication: SEASONAL AFFECTIVE DISORDER
     Dosage: 75 MG, 1 IN 1 D PER ORAL; 0.2 %, 2 IN 1 D, TOPICAL
     Route: 048
     Dates: start: 20010101
  12. ADVAIR DISKUS 100/50 [Suspect]
     Indication: BRONCHITIS
     Dosage: 250/250 MG 1 PUFF, 2 IN 1 D, RESPIRATORY (INHALATION)
     Route: 055
     Dates: start: 20090201, end: 20090531
  13. PAXIL [Suspect]
  14. XOPENEX [Concomitant]
  15. CARAFATE [Concomitant]
  16. CLOTRIMAZOLE [Concomitant]
  17. FUNGOID TINCTURE (MICONAZOLE NITRATE) [Concomitant]
  18. LEVOSALBUTAMOL (LEVOSALBUTAMOL) [Concomitant]
  19. BUSPIRONE HCL [Concomitant]
  20. TRANSDERM SQ (HYOSCINE) [Concomitant]

REACTIONS (8)
  - BLINDNESS TRANSIENT [None]
  - DEAFNESS [None]
  - DRUG HYPERSENSITIVITY [None]
  - ERYTHEMA [None]
  - HYPERACUSIS [None]
  - LOSS OF CONSCIOUSNESS [None]
  - PRURITUS [None]
  - SWELLING FACE [None]
